FAERS Safety Report 13581530 (Version 1)
Quarter: 2017Q2

REPORT INFORMATION
  Report Type: Spontaneous
  Country: US (occurrence: US)
  Receive Date: 20170525
  Receipt Date: 20170525
  Transmission Date: 20170830
  Serious: No
  Sender: FDA-Public Use
  Company Number: US-SUN PHARMACEUTICAL INDUSTRIES LTD-2016US-121213

PATIENT
  Age: 82 Year
  Sex: Male

DRUGS (2)
  1. LORATADINE. [Suspect]
     Active Substance: LORATADINE
     Indication: RHINORRHOEA
  2. LORATADINE. [Suspect]
     Active Substance: LORATADINE
     Indication: SNEEZING
     Dosage: 1 DF, SINGLE
     Route: 048
     Dates: start: 20160726

REACTIONS (3)
  - Drug ineffective [Unknown]
  - Drug administration error [Unknown]
  - Expired product administered [Unknown]

NARRATIVE: CASE EVENT DATE: 20160726
